FAERS Safety Report 7385393-8 (Version None)
Quarter: 2011Q1

REPORT INFORMATION
  Report Type: 
  Country: None (occurrence: None)
  Receive Date: 20110330
  Receipt Date: 20110125
  Transmission Date: 20110831
  Serious: No
  Sender: FDA-Public Use
  Company Number: US-MYLANLABS-2011S1001925

PATIENT
  Sex: Female

DRUGS (1)
  1. EMSAM [Suspect]
     Indication: PANIC ATTACK
     Dosage: CHANGED QD
     Route: 062
     Dates: start: 20110118

REACTIONS (4)
  - HEADACHE [None]
  - FATIGUE [None]
  - AGITATION [None]
  - NAUSEA [None]
